FAERS Safety Report 17561949 (Version 6)
Quarter: 2020Q4

REPORT INFORMATION
  Report Type: Report from Study
  Country: GB (occurrence: GB)
  Receive Date: 20200319
  Receipt Date: 20201204
  Transmission Date: 20210113
  Serious: Yes (Death, Congenital Anomaly, Other)
  Sender: FDA-Public Use
  Company Number: GB-MYLANLABS-2020M1029013

PATIENT

DRUGS (7)
  1. NORVIR [Suspect]
     Active Substance: RITONAVIR
     Indication: HIV INFECTION
     Dosage: 500 MILLIGRAM, QD/500 MG/DAY
     Route: 064
     Dates: start: 20000122
  2. SEBIVO [Suspect]
     Active Substance: TELBIVUDINE
     Indication: PRODUCT USED FOR UNKNOWN INDICATION
     Dosage: UNK
     Route: 065
  3. RITONAVIR. [Suspect]
     Active Substance: RITONAVIR
     Indication: HIV INFECTION
     Dosage: 500 MILLIGRAM, QD
     Route: 064
     Dates: start: 20000122
  4. RETROVIR [Suspect]
     Active Substance: ZIDOVUDINE
     Indication: HIV INFECTION
     Dosage: 250 MG (500MG, QD), FREQUENCY OF PRODUCT : 2D
     Route: 064
     Dates: start: 20000122
  5. NEVIRAPINE. [Suspect]
     Active Substance: NEVIRAPINE
     Indication: HIV INFECTION
     Dosage: 400 MG (400MG, QD),FREQUENCY OF PRODUCT : 1D/400 MG/DAY
     Route: 064
     Dates: start: 20000122
  6. DIDANOSINE. [Suspect]
     Active Substance: DIDANOSINE
     Indication: HIV INFECTION
     Dosage: 400 MG, QD, FREQUENCY OF PRODUCT : 1D/400 MG/DAY
     Route: 064
     Dates: start: 20040122
  7. VIRAMUNE [Suspect]
     Active Substance: NEVIRAPINE
     Indication: HIV INFECTION
     Dosage: 400 MILLIGRAM, QD (400 MG (400MG, QD),FREQUENCY OF PRODUCT : 1D/400 MG/DAY)

REACTIONS (4)
  - Congenital central nervous system anomaly [Fatal]
  - Pulmonary hypoplasia [Fatal]
  - Stillbirth [Fatal]
  - Foetal exposure during pregnancy [Recovered/Resolved]

NARRATIVE: CASE EVENT DATE: 200406
